FAERS Safety Report 16053845 (Version 1)
Quarter: 2019Q1

REPORT INFORMATION
  Report Type: Report from Study
  Country: US (occurrence: US)
  Receive Date: 20190308
  Receipt Date: 20190308
  Transmission Date: 20190418
  Serious: Yes (Hospitalization)
  Sender: FDA-Public Use
  Company Number: US-PFIZER INC-2019092735

PATIENT
  Age: 13 Year
  Sex: Male
  Weight: 70.8 kg

DRUGS (12)
  1. IFOSFAMIDE. [Concomitant]
     Active Substance: IFOSFAMIDE
     Indication: ANAPLASTIC LARGE-CELL LYMPHOMA
     Dosage: 800 MG/M2, OVER 60 MIN ON DAYS 1-5 (COURSE A)
     Route: 042
  2. METHOTREXATE. [Concomitant]
     Active Substance: METHOTREXATE
     Indication: ANAPLASTIC LARGE-CELL LYMPHOMA
     Dosage: 7.5-12 MG (AGE BASED DOSING) ON DAY 1, CYCLIC
     Route: 042
  3. DEXAMETHASONE. [Concomitant]
     Active Substance: DEXAMETHASONE
     Indication: ANAPLASTIC LARGE-CELL LYMPHOMA
     Dosage: 5 MG/M2, QD ON DAYS 1-2 AND BID ON DAYS 3-5
     Route: 048
  4. CRIZOTINIB [Suspect]
     Active Substance: CRIZOTINIB
     Indication: ANAPLASTIC LARGE-CELL LYMPHOMA
     Dosage: 165 MG/M2, BID ON DAYS 1-21
     Route: 048
     Dates: start: 20181029
  5. DOXORUBICIN HCL [Suspect]
     Active Substance: DOXORUBICIN HYDROCHLORIDE
     Indication: ANAPLASTIC LARGE-CELL LYMPHOMA
     Dosage: 25 MG/M2, OVER 1-15 MIN ON DAYS 4 AND 5 OF CYCLES 2, 4, 6
     Route: 042
  6. DEXAMETHASONE. [Concomitant]
     Active Substance: DEXAMETHASONE
     Dosage: 5 MG/M2, BID ON DAYS 1-5(COURSE A, B)
  7. CYTARABINE. [Concomitant]
     Active Substance: CYTARABINE
     Dosage: 150 MG/M2, 150 MG/M2, OVER 1-30 MINUTES Q12 HOURS ON DAYS 4 AND 5 (TOTAL 4 DOSES) (COURSE A)
     Route: 042
  8. CYCLOPHOSPHAMIDE. [Suspect]
     Active Substance: CYCLOPHOSPHAMIDE
     Indication: ANAPLASTIC LARGE-CELL LYMPHOMA
     Dosage: 200 MG/M2,OVER 15-30 MIN ON DAYS 1 AND 2 OF PROPHASE; OVER 15-30 MIN ON DAYS 1-5 OF CYCLES 2, 4, 6
     Route: 042
  9. HYDROCORTISONE. [Concomitant]
     Active Substance: HYDROCORTISONE
     Indication: ANAPLASTIC LARGE-CELL LYMPHOMA
     Dosage: 7.5-12MG ON DAY 1 (AGE BASED DOSING (PROPHASE) CYCLIC
     Route: 042
  10. METHOTREXATE. [Concomitant]
     Active Substance: METHOTREXATE
     Dosage: 3000 MG/M2, OVER 3 HOURS ON DAY 1 (COURSE A, B)
  11. CYTARABINE. [Concomitant]
     Active Substance: CYTARABINE
     Indication: ANAPLASTIC LARGE-CELL LYMPHOMA
     Dosage: 15-24MG (AGE BASED DOSING), ON DAY 1 (PROPHASE)
     Route: 042
  12. VP-16 [Concomitant]
     Active Substance: ETOPOSIDE
     Indication: ANAPLASTIC LARGE-CELL LYMPHOMA
     Dosage: 100 MG/M2, OVER 2 HOURS ON DAYS 4 AND 5 (COURSE A)
     Route: 042

REACTIONS (3)
  - Stomatitis [Recovered/Resolved]
  - Febrile neutropenia [Recovered/Resolved]
  - Colitis [Recovered/Resolved]

NARRATIVE: CASE EVENT DATE: 20190111
